FAERS Safety Report 16697809 (Version 1)
Quarter: 2019Q3

REPORT INFORMATION
  Report Type: Spontaneous
  Country: FI (occurrence: FI)
  Receive Date: 20190813
  Receipt Date: 20190813
  Transmission Date: 20191004
  Serious: Yes (Death, Other)
  Sender: FDA-Public Use
  Company Number: FI-JNJFOC-20190813841

PATIENT
  Age: 71 Year
  Sex: Male

DRUGS (1)
  1. RIVAROXABAN [Suspect]
     Active Substance: RIVAROXABAN
     Indication: ATRIAL FIBRILLATION
     Route: 048

REACTIONS (5)
  - Cerebellar infarction [Fatal]
  - Cerebral infarction [Fatal]
  - Arteriosclerosis [Fatal]
  - Hepatic vein occlusion [Fatal]
  - Splenic infarction [Fatal]

NARRATIVE: CASE EVENT DATE: 20190704
